FAERS Safety Report 5509885-9 (Version None)
Quarter: 2007Q4

REPORT INFORMATION
  Report Type: 
  Country: None (occurrence: None)
  Receive Date: 20071107
  Receipt Date: 20071107
  Transmission Date: 20080405
  Serious: No
  Sender: FDA-Public Use
  Company Number: None

PATIENT
  Age: 35 Year
  Sex: Female
  Weight: 57.6068 kg

DRUGS (1)
  1. NEUTROGENA DEEP CLEAN FACIAL CLE NEUTROGENA CORPORATION [Suspect]
     Indication: OILY SKIN
     Dosage: TWICE DAILY TOP
     Route: 061
     Dates: start: 20070915, end: 20071021

REACTIONS (2)
  - DRUG EXPOSURE DURING PREGNANCY [None]
  - PHARMACEUTICAL PRODUCT COMPLAINT [None]
